FAERS Safety Report 4397547-3 (Version None)
Quarter: 2004Q3

REPORT INFORMATION
  Report Type: 
  Country: None (occurrence: None)
  Receive Date: 20040708
  Receipt Date: 20040622
  Transmission Date: 20050211
  Serious: Yes (Hospitalization)
  Sender: FDA-Public Use
  Company Number: D01200401795

PATIENT
  Age: 72 Year
  Sex: Female
  Weight: 79 kg

DRUGS (9)
  1. CISPLATIN [Suspect]
     Indication: SMALL CELL LUNG CANCER EXTENSIVE STAGE
     Dosage: 80 MG/M2 CONT - INTRAVENOUS NOS
     Route: 042
     Dates: start: 20040513, end: 20040513
  2. ETOPOSIDE [Suspect]
     Indication: SMALL CELL LUNG CANCER EXTENSIVE STAGE
     Dosage: 120 MG/M2 GIVEN ON DAYS 1,2 AND 3, IN A 30-MINUTE INFUSION - INTRAVENOUS NOS
     Route: 042
     Dates: start: 20040513, end: 20040515
  3. GLYBURIDE [Concomitant]
  4. AMOXICILLIN SULBACTAM [Concomitant]
  5. NAPROXEN [Concomitant]
  6. HEPARIN [Concomitant]
  7. ACETAMINOPHEN [Concomitant]
  8. BLOOD CELLS, PACKED HUMAN [Concomitant]
  9. ONDANSETRON [Concomitant]

REACTIONS (5)
  - ANAEMIA [None]
  - GASTRIC ULCER HAEMORRHAGE [None]
  - HAEMATEMESIS [None]
  - MELAENA [None]
  - THROMBOCYTOPENIA [None]
